FAERS Safety Report 7773742-8 (Version None)
Quarter: 2011Q3

REPORT INFORMATION
  Report Type: 
  Country: None (occurrence: None)
  Receive Date: 20110920
  Receipt Date: 20110909
  Transmission Date: 20111222
  Serious: Yes (Hospitalization, Other)
  Sender: FDA-Public Use
  Company Number: DKLU1073027

PATIENT
  Age: 14 Month
  Sex: Male

DRUGS (3)
  1. KEPPRA [Concomitant]
  2. TOPAMAX [Concomitant]
  3. SABRIL [Suspect]
     Indication: INFANTILE SPASMS
     Dosage: ORAL
     Route: 048

REACTIONS (3)
  - RESPIRATORY DISTRESS [None]
  - APNOEA [None]
  - CONVULSION [None]
